FAERS Safety Report 19074703 (Version 1)
Quarter: 2021Q1

REPORT INFORMATION
  Report Type: Spontaneous
  Country: US (occurrence: US)
  Receive Date: 20210330
  Receipt Date: 20210330
  Transmission Date: 20210420
  Serious: No
  Sender: FDA-Public Use
  Company Number: US-ELI_LILLY_AND_COMPANY-US202103013786

PATIENT
  Age: 59 Year
  Sex: Male

DRUGS (2)
  1. BAMLANIVIMAB 700MG [Suspect]
     Active Substance: BAMLANIVIMAB
     Indication: COVID-19
     Dosage: UNK, SINGLE
     Route: 042
     Dates: start: 20210317, end: 20210317
  2. TYLENOL [Concomitant]
     Active Substance: ACETAMINOPHEN
     Indication: COVID-19
     Dates: start: 20210308, end: 20210315

REACTIONS (7)
  - Agitation [Unknown]
  - Hyperhidrosis [Recovering/Resolving]
  - Discomfort [Unknown]
  - Personality change [Unknown]
  - Irritability [Unknown]
  - Aggression [Unknown]
  - Feeling abnormal [Unknown]

NARRATIVE: CASE EVENT DATE: 20210317
